FAERS Safety Report 10585257 (Version 1)
Quarter: 2014Q4

REPORT INFORMATION
  Report Type: Spontaneous
  Country: US (occurrence: US)
  Receive Date: 20141114
  Receipt Date: 20141114
  Transmission Date: 20150529
  Serious: Yes (Hospitalization)
  Sender: FDA-Public Use
  Company Number: US-TEVA-522678USA

PATIENT

DRUGS (2)
  1. METRONIDAZOLE. [Suspect]
     Active Substance: METRONIDAZOLE
     Route: 065
  2. METHYLDOPA. [Suspect]
     Active Substance: METHYLDOPA
     Dosage: TOOK 8 DOSES
     Route: 065

REACTIONS (5)
  - Dysstasia [Unknown]
  - Wrong drug administered [Unknown]
  - Somnolence [Unknown]
  - Product packaging issue [Unknown]
  - Drug dispensing error [Unknown]
